FAERS Safety Report 6273204-3 (Version None)
Quarter: 2009Q3

REPORT INFORMATION
  Report Type: 
  Country: None (occurrence: None)
  Receive Date: 20090715
  Receipt Date: 20090706
  Transmission Date: 20100115
  Serious: Yes (Life-Threatening, Hospitalization)
  Sender: FDA-Public Use
  Company Number: TW-JNJFOC-20090604957

PATIENT
  Age: 58 Year
  Sex: Male
  Weight: 73 kg

DRUGS (1)
  1. DECITABINE (DECITABINE) LYOPHILIZED [Suspect]
     Indication: MYELODYSPLASTIC SYNDROME
     Dosage: 38 MG, INTRAVENOUS
     Route: 042
     Dates: start: 20090601, end: 20090605

REACTIONS (6)
  - ANAL ABSCESS [None]
  - CONSTIPATION [None]
  - DYSURIA [None]
  - FEBRILE NEUTROPENIA [None]
  - FISTULA [None]
  - PANCYTOPENIA [None]
